FAERS Safety Report 9307202 (Version 1)
Quarter: 2013Q2

REPORT INFORMATION
  Report Type: Spontaneous
  Country: RU (occurrence: RU)
  Receive Date: 20130524
  Receipt Date: 20130524
  Transmission Date: 20140414
  Serious: Yes (Death, Life-Threatening)
  Sender: FDA-Public Use
  Company Number: RU-GE HEALTHCARE MEDICAL DIAGNOSTICS-OMPQ-NO-1305S-0616

PATIENT
  Age: 51 Year
  Sex: Female
  Weight: 72.1 kg

DRUGS (15)
  1. OMNIPAQUE [Suspect]
     Indication: ACUTE MYOCARDIAL INFARCTION
     Route: 022
     Dates: start: 20120219, end: 20120219
  2. OMNIPAQUE [Suspect]
     Indication: ATRIOVENTRICULAR BLOCK COMPLETE
  3. OMNIPAQUE [Suspect]
     Indication: DIAGNOSTIC PROCEDURE
  4. OMNIPAQUE [Suspect]
     Indication: PERCUTANEOUS CORONARY INTERVENTION
  5. OMNIPAQUE [Suspect]
     Indication: CORONARY ARTERIAL STENT INSERTION
  6. CANGRELOR [Suspect]
     Indication: PERCUTANEOUS CORONARY INTERVENTION
     Route: 042
     Dates: start: 20120219, end: 20120219
  7. CANGRELOR [Suspect]
     Route: 042
     Dates: start: 20120219, end: 20120219
  8. CANGRELOR [Suspect]
     Dates: start: 20120219, end: 20120219
  9. CANGRELOR [Suspect]
     Dates: start: 20120219, end: 20120219
  10. ASPIRIN [Concomitant]
     Dates: start: 201202, end: 201202
  11. HEPARIN [Concomitant]
     Dates: start: 201202, end: 201202
  12. HEPARIN [Concomitant]
     Dates: start: 20120219, end: 20120219
  13. HUMULIN [Concomitant]
     Dates: end: 20120218
  14. ACTRAPID [Concomitant]
     Dates: end: 20120218
  15. CLOPIDOGREL [Concomitant]
     Dates: start: 20120219, end: 20120219

REACTIONS (3)
  - Cardiogenic shock [Fatal]
  - Myocardial infarction [Fatal]
  - Nephropathy toxic [Fatal]
